FAERS Safety Report 6821336-0 (Version None)
Quarter: 2010Q3

REPORT INFORMATION
  Report Type: 
  Country: None (occurrence: None)
  Receive Date: 20100707
  Receipt Date: 20080723
  Transmission Date: 20110219
  Serious: No
  Sender: FDA-Public Use
  Company Number: US-PFIZER INC-2008062367

PATIENT
  Sex: Male
  Weight: 2.727 kg

DRUGS (3)
  1. ZOLOFT [Suspect]
     Indication: DEPRESSION
     Dates: start: 20080201
  2. ZOLOFT [Suspect]
     Indication: OBSESSIVE-COMPULSIVE DISORDER
  3. ZOLOFT [Suspect]
     Indication: ANXIETY

REACTIONS (8)
  - DECREASED APPETITE [None]
  - DIARRHOEA [None]
  - GASTRIC DISORDER [None]
  - GROWTH RETARDATION [None]
  - HEADACHE [None]
  - MUSCLE SPASMS [None]
  - PYREXIA [None]
  - WEIGHT DECREASED [None]
